FAERS Safety Report 5278384-4 (Version None)
Quarter: 2007Q1

REPORT INFORMATION
  Report Type: 
  Country: None (occurrence: None)
  Receive Date: 20070322
  Receipt Date: 20070308
  Transmission Date: 20070707
  Serious: Yes (Hospitalization)
  Sender: FDA-Public Use
  Company Number: 232997

PATIENT
  Age: 57 Year
  Sex: Male

DRUGS (2)
  1. AVASTIN [Suspect]
     Indication: HAEMANGIOPERICYTOMA
     Dosage: 5 MG/KG, 2/WEEK, INTRAVENOUS
     Route: 042
     Dates: start: 20060927, end: 20061025
  2. TAXOTERE [Concomitant]

REACTIONS (2)
  - DRUG INEFFECTIVE [None]
  - SEPSIS [None]
